FAERS Safety Report 6265028-8 (Version None)
Quarter: 2009Q3

REPORT INFORMATION
  Report Type: 
  Country: None (occurrence: None)
  Receive Date: 20090713
  Receipt Date: 20071206
  Transmission Date: 20100115
  Serious: Yes (Other)
  Sender: FDA-Public Use
  Company Number: US-ASTRAZENECA-2007UW18853

PATIENT
  Age: 20078 Day
  Sex: Female

DRUGS (10)
  1. SEROQUEL [Suspect]
     Indication: SCHIZOPHRENIA
     Route: 048
     Dates: start: 20011226, end: 20060301
  2. SEROQUEL [Suspect]
     Route: 048
     Dates: start: 20040615
  3. RISPERDAL [Concomitant]
     Indication: SCHIZOPHRENIA
  4. CAPTOPRIL [Concomitant]
  5. PROTONIX [Concomitant]
  6. HYDROCHLOROTHIAZIDE [Concomitant]
  7. ZOLOFT [Concomitant]
  8. COUMADIN [Concomitant]
  9. PREDNISONE TAB [Concomitant]
  10. INSULIN [Concomitant]

REACTIONS (4)
  - DIABETES MELLITUS [None]
  - DIABETES MELLITUS INADEQUATE CONTROL [None]
  - DIABETIC NEUROPATHY [None]
  - HYPOGLYCAEMIA [None]
